FAERS Safety Report 9250019 (Version 1)
Quarter: 2013Q2

REPORT INFORMATION
  Report Type: Spontaneous
  Country: FR (occurrence: FR)
  Receive Date: 20130424
  Receipt Date: 20130424
  Transmission Date: 20140414
  Serious: Yes (Death, Hospitalization)
  Sender: FDA-Public Use
  Company Number: FR-ROCHE-1217078

PATIENT
  Age: 62 Year
  Sex: Male

DRUGS (1)
  1. MABTHERA [Suspect]
     Indication: B-CELL LYMPHOMA
     Route: 042
     Dates: start: 201002, end: 20110713

REACTIONS (5)
  - Hepatitis B [Fatal]
  - Hepatic failure [Fatal]
  - Hepatorenal syndrome [Fatal]
  - Asterixis [Fatal]
  - Hepatic encephalopathy [Fatal]
